FAERS Safety Report 6317716-2 (Version None)
Quarter: 2009Q3

REPORT INFORMATION
  Report Type: 
  Country: None (occurrence: None)
  Receive Date: 20090820
  Receipt Date: 20090820
  Transmission Date: 20100115
  Serious: Yes (Other)
  Sender: FDA-Public Use
  Company Number: None

PATIENT
  Age: 10 Year
  Sex: Male
  Weight: 22.9 kg

DRUGS (2)
  1. ARGININE [Suspect]
  2. CLONIDINE [Concomitant]

REACTIONS (3)
  - BACK PAIN [None]
  - HAEMATURIA [None]
  - URINARY BLADDER HAEMORRHAGE [None]
